FAERS Safety Report 8556682-6 (Version None)
Quarter: 2012Q3

REPORT INFORMATION
  Report Type: 
  Country: None (occurrence: None)
  Receive Date: 20120801
  Receipt Date: 20120726
  Transmission Date: 20120928
  Serious: Yes (Other)
  Sender: FDA-Public Use
  Company Number: US-009507513-2011SP049968

PATIENT

DRUGS (3)
  1. PEG-INTRON [Suspect]
     Indication: HEPATITIS C
     Dosage: UNK UNK, UNKNOWN
     Route: 065
     Dates: start: 20110705, end: 20111201
  2. INVESTIGATIONAL DRUG (UNSPECIFIED) [Suspect]
     Indication: HEPATITIS C
     Dosage: UNK UNK, UNKNOWN
     Route: 065
     Dates: start: 20110705, end: 20110929
  3. RIBAVIRIN [Suspect]
     Indication: HEPATITIS C
     Dosage: UNK UNK, UNKNOWN
     Route: 065
     Dates: start: 20110705, end: 20111201

REACTIONS (9)
  - NAUSEA [None]
  - PARAESTHESIA [None]
  - ANAEMIA [None]
  - WEIGHT DECREASED [None]
  - INSOMNIA [None]
  - ASTHENIA [None]
  - HAEMOLYTIC ANAEMIA [None]
  - PRURITUS [None]
  - MALAISE [None]
